FAERS Safety Report 20946457 (Version 1)
Quarter: 2022Q2

REPORT INFORMATION
  Report Type: Report from Study
  Country: CZ (occurrence: CZ)
  Receive Date: 20220610
  Receipt Date: 20220610
  Transmission Date: 20220720
  Serious: Yes (Hospitalization, Other)
  Sender: FDA-Public Use
  Company Number: CZ-JNJFOC-20220612512

PATIENT
  Sex: Male

DRUGS (1)
  1. SIMPONI [Suspect]
     Active Substance: GOLIMUMAB
     Indication: Ankylosing spondylitis
     Route: 058
     Dates: start: 20190603

REACTIONS (5)
  - Peritonitis [Recovering/Resolving]
  - Appendicitis [Recovering/Resolving]
  - Wound dehiscence [Recovering/Resolving]
  - Hip arthroplasty [Unknown]
  - Stoma complication [Unknown]

NARRATIVE: CASE EVENT DATE: 20210902
